FAERS Safety Report 13121673 (Version 2)
Quarter: 2017Q1

REPORT INFORMATION
  Report Type: Spontaneous
  Country: PE (occurrence: PE)
  Receive Date: 20170117
  Receipt Date: 20170316
  Transmission Date: 20170428
  Serious: Yes (Disabling, Other)
  Sender: FDA-Public Use
  Company Number: PE-PFIZER INC-2017013199

PATIENT
  Age: 74 Year
  Sex: Female

DRUGS (4)
  1. IRRIGOR /00505202/ [Concomitant]
     Dosage: UNK
  2. DIOXAFLEX /00372302/ [Concomitant]
     Dosage: 2 DF, DAILY (1 CAPSULE IN THE MORNING AND 1 CAPSULE AT NIGTH)
  3. NUCLEO C.M.P. /00659201/ [Concomitant]
     Dosage: UNK
  4. LYRICA [Suspect]
     Active Substance: PREGABALIN
     Indication: PAIN
     Dosage: 150 MG, 3X/DAY
     Dates: start: 201611

REACTIONS (2)
  - Bone tuberculosis [Recovering/Resolving]
  - Bedridden [Recovering/Resolving]
